FAERS Safety Report 7873756-3 (Version None)
Quarter: 2011Q4

REPORT INFORMATION
  Report Type: 
  Country: None (occurrence: None)
  Receive Date: 20111017
  Receipt Date: 20101222
  Transmission Date: 20120403
  Serious: Yes (Hospitalization)
  Sender: FDA-Public Use
  Company Number: 2011S1000009

PATIENT
  Sex: Male

DRUGS (5)
  1. PRILOSEC [Concomitant]
  2. DARVOCET-N 100 [Suspect]
     Indication: ARTHRALGIA
     Dosage: (AS REQUIRED),ORAL
     Route: 048
     Dates: end: 20101101
  3. DARVOCET-N 100 [Suspect]
     Indication: BACK PAIN
     Dosage: (AS REQUIRED),ORAL
     Route: 048
     Dates: end: 20101101
  4. UNSPECIFIED HEART MEDICATION [Concomitant]
  5. UNSPECIFIED BLOOD PRESSURE MEDICATION [Concomitant]

REACTIONS (1)
  - MYOCARDIAL INFARCTION [None]
